FAERS Safety Report 7632913-1 (Version None)
Quarter: 2011Q3

REPORT INFORMATION
  Report Type: 
  Country: None (occurrence: None)
  Receive Date: 20110725
  Receipt Date: 20110713
  Transmission Date: 20111222
  Serious: Yes (Other)
  Sender: FDA-Public Use
  Company Number: US-ROCHE-752023

PATIENT
  Sex: Female
  Weight: 79.4 kg

DRUGS (3)
  1. BIRTH CONTROL PILLS NOS [Concomitant]
  2. ACCUTANE [Suspect]
     Indication: ACNE
     Route: 065
     Dates: start: 19850301
  3. ACCUTANE [Suspect]
     Route: 065
     Dates: start: 19851001, end: 19860101

REACTIONS (7)
  - IRRITABLE BOWEL SYNDROME [None]
  - CROHN'S DISEASE [None]
  - INTESTINAL OBSTRUCTION [None]
  - INFLAMMATORY BOWEL DISEASE [None]
  - MENTAL DISORDER [None]
  - GASTROINTESTINAL INJURY [None]
  - DEPRESSION [None]
